FAERS Safety Report 4280141-2 (Version None)
Quarter: 2004Q1

REPORT INFORMATION
  Report Type: 
  Country: None (occurrence: None)
  Receive Date: 20040126
  Receipt Date: 20040119
  Transmission Date: 20041129
  Serious: Yes (Death)
  Sender: FDA-Public Use
  Company Number: US-JNJFOC-20040103679

PATIENT
  Age: 81 Year
  Sex: Female

DRUGS (1)
  1. RISPERDAL [Suspect]
     Indication: DEMENTIA
     Dosage: , 1 IN 1 DAY, ORAL
     Route: 048
     Dates: end: 20040101

REACTIONS (1)
  - CARDIAC FAILURE CONGESTIVE [None]
